FAERS Safety Report 9169686 (Version 2)
Quarter: 2013Q2

REPORT INFORMATION
  Report Type: Spontaneous
  Country: US (occurrence: US)
  Receive Date: 20130318
  Receipt Date: 20130409
  Transmission Date: 20140414
  Serious: Yes (Hospitalization)
  Sender: FDA-Public Use
  Company Number: US-GILEAD-2013-0071766

PATIENT
  Sex: Male

DRUGS (7)
  1. LETAIRIS [Suspect]
     Indication: PULMONARY HYPERTENSION
     Dosage: 10 MG, QD
     Route: 048
     Dates: start: 20120612
  2. LETAIRIS [Suspect]
     Indication: EISENMENGER^S SYNDROME
  3. LETAIRIS [Suspect]
     Indication: VENTRICULAR SEPTAL DEFECT
  4. XARELTO [Concomitant]
  5. AMIODARONE [Concomitant]
  6. LASIX                              /00032601/ [Concomitant]
  7. POTASSIUM CHLORIDE [Concomitant]

REACTIONS (2)
  - Hypotension [Not Recovered/Not Resolved]
  - Dyspnoea [Unknown]
